FAERS Safety Report 8902033 (Version 1)
Quarter: 2012Q4

REPORT INFORMATION
  Report Type: 
  Country: ES (occurrence: ES)
  Receive Date: 20121112
  Receipt Date: 20121112
  Transmission Date: 20130627
  Serious: Yes (Hospitalization)
  Sender: FDA-Public Use
  Company Number: PHHY2012ES102404

PATIENT
  Age: 69 Year
  Sex: Male

DRUGS (6)
  1. ONBREZ [Suspect]
     Dosage: 150 ug, UNK
     Dates: start: 201203, end: 20120524
  2. ALDACTONE [Interacting]
     Indication: HEPATIC CIRRHOSIS
     Dosage: 100 mg, QD
     Route: 048
     Dates: start: 201107, end: 20120524
  3. KARVEZIDE [Interacting]
     Indication: HYPERTENSION
     Dosage: 1 DF, one full dose
     Dates: start: 2003, end: 20120524
  4. METFORMIN [Concomitant]
     Indication: TYPE 2 DIABETES MELLITUS
     Route: 048
     Dates: start: 2003
  5. FUROSEMIDE [Concomitant]
     Indication: CARDIAC FAILURE
     Dosage: 40 mg, QD
     Route: 048
     Dates: start: 2003
  6. SIMVASTATIN [Concomitant]
     Indication: DYSLIPIDAEMIA
     Dosage: 20 mg, QD
     Route: 048

REACTIONS (5)
  - Atrioventricular block [Recovered/Resolved]
  - Bundle branch block right [Recovered/Resolved]
  - Hyperkalaemia [Recovered/Resolved]
  - Ventricular extrasystoles [Recovered/Resolved]
  - Drug interaction [Unknown]
